FAERS Safety Report 7632585-6 (Version None)
Quarter: 2011Q3

REPORT INFORMATION
  Report Type: 
  Country: None (occurrence: None)
  Receive Date: 20110725
  Receipt Date: 20101025
  Transmission Date: 20111222
  Serious: No
  Sender: FDA-Public Use
  Company Number: US-BRISTOL-MYERS SQUIBB COMPANY-15345218

PATIENT
  Age: 8 Decade
  Sex: Female

DRUGS (2)
  1. MUCOMYST [Suspect]
     Indication: LOWER RESPIRATORY TRACT INFECTION
     Dosage: RECEIVED IN A NEBULIZED FORM;3DAYS
     Route: 055
     Dates: start: 20101014
  2. WARFARIN SODIUM [Suspect]

REACTIONS (2)
  - INTERNATIONAL NORMALISED RATIO ABNORMAL [None]
  - LOWER RESPIRATORY TRACT INFECTION [None]
